FAERS Safety Report 8380841-9 (Version None)
Quarter: 2012Q2

REPORT INFORMATION
  Report Type: 
  Country: None (occurrence: None)
  Receive Date: 20120523
  Receipt Date: 20120514
  Transmission Date: 20120825
  Serious: Yes (Death)
  Sender: FDA-Public Use
  Company Number: ES-CELGENEUS-144-50794-11051596

PATIENT
  Age: 70 Year
  Sex: Female

DRUGS (1)
  1. VIDAZA [Suspect]
     Route: 065

REACTIONS (4)
  - RHABDOMYOLYSIS [None]
  - MUSCULAR WEAKNESS [None]
  - SUBDURAL HAEMATOMA [None]
  - THROMBOCYTOPENIA [None]
